FAERS Safety Report 5230887-4 (Version None)
Quarter: 2007Q1

REPORT INFORMATION
  Report Type: 
  Country: None (occurrence: None)
  Receive Date: 20070206
  Receipt Date: 20070131
  Transmission Date: 20070707
  Serious: Yes (Other)
  Sender: FDA-Public Use
  Company Number: GB-GLAXOSMITHKLINE-B0359785A

PATIENT
  Sex: Male

DRUGS (7)
  1. SEROXAT [Suspect]
     Route: 065
     Dates: start: 19981202
  2. DIAZEPAM [Concomitant]
     Indication: ANXIETY
     Route: 065
  3. TRAMADOL HCL [Concomitant]
  4. GABAPENTIN [Concomitant]
  5. MEBEVERINE [Concomitant]
  6. OMEPRAZOLE [Concomitant]
  7. ALFUZOSIN [Concomitant]

REACTIONS (6)
  - BLINDNESS [None]
  - DRUG WITHDRAWAL SYNDROME [None]
  - FEAR [None]
  - NERVOUSNESS [None]
  - SENSORY DISTURBANCE [None]
  - SUICIDE ATTEMPT [None]
